FAERS Safety Report 5594321-7 (Version None)
Quarter: 2008Q1

REPORT INFORMATION
  Report Type: 
  Country: None (occurrence: None)
  Receive Date: 20080117
  Receipt Date: 20080108
  Transmission Date: 20080703
  Serious: Yes (Hospitalization, Other)
  Sender: FDA-Public Use
  Company Number: PHRM2008FR00522

PATIENT
  Age: 58 Year
  Sex: Male

DRUGS (4)
  1. DOXORUBICIN HCL [Suspect]
     Indication: HEPATIC NEOPLASM MALIGNANT
     Dosage: 50 ML, ONCE/SINGLE
     Dates: start: 20071105
  2. LIPIODOL [Suspect]
     Indication: THERAPEUTIC EMBOLISATION
     Dosage: 10 ML, ONCE/SINGLE
     Dates: start: 20071105
  3. LESCOL [Suspect]
     Indication: HYPERCHOLESTEROLAEMIA
     Dosage: 80 MG/DAY
     Route: 048
     Dates: end: 20071113
  4. AUGMENTIN '250' [Suspect]
     Dosage: 1 G, TID
     Dates: start: 20071108, end: 20071116

REACTIONS (9)
  - ABDOMINAL PAIN [None]
  - ALANINE AMINOTRANSFERASE INCREASED [None]
  - ASPARTATE AMINOTRANSFERASE INCREASED [None]
  - BLOOD CREATINE PHOSPHOKINASE INCREASED [None]
  - CYTOLYTIC HEPATITIS [None]
  - ENCEPHALOPATHY [None]
  - MYALGIA [None]
  - NEUTROPENIA [None]
  - RHABDOMYOLYSIS [None]
